FAERS Safety Report 8102129-3 (Version None)
Quarter: 2012Q1

REPORT INFORMATION
  Report Type: 
  Country: None (occurrence: None)
  Receive Date: 20120131
  Receipt Date: 20120125
  Transmission Date: 20120608
  Serious: Yes (Hospitalization, Other)
  Sender: FDA-Public Use
  Company Number: PHHY2012BR007212

PATIENT
  Age: 54 Year
  Sex: Male

DRUGS (3)
  1. VALIUM [Concomitant]
  2. DIOVAN [Concomitant]
     Indication: HYPERTENSION
     Dosage: 320 MG, QD
     Route: 048
     Dates: start: 19830101
  3. ATENOLOL [Suspect]
     Indication: HYPERTENSION
     Route: 048

REACTIONS (2)
  - CORONARY ARTERY OCCLUSION [None]
  - CHEST PAIN [None]
